FAERS Safety Report 7538822-0 (Version None)
Quarter: 2011Q2

REPORT INFORMATION
  Report Type: 
  Country: None (occurrence: None)
  Receive Date: 20110610
  Receipt Date: 20110106
  Transmission Date: 20111010
  Serious: Yes (Hospitalization, Other)
  Sender: FDA-Public Use
  Company Number: US-BAYER-200942880NA

PATIENT
  Age: 46 Year
  Sex: Female
  Weight: 99.773 kg

DRUGS (17)
  1. YASMIN [Suspect]
     Indication: MENSTRUATION IRREGULAR
  2. ADDERALL 10 [Concomitant]
     Dosage: 20 MG, BID
     Route: 048
  3. PROZAC [Concomitant]
     Dosage: 40 MG, QD
     Route: 048
  4. HYDROCHLOROTHIAZIDE [Concomitant]
  5. NSAID'S [Concomitant]
     Dosage: UNK UNK, PRN
  6. LISINOPRIL [Concomitant]
     Indication: HYPERTENSION
  7. YASMIN [Suspect]
     Indication: PREMENSTRUAL SYNDROME
     Dosage: ABOUT DEC 2006 ON OR ABOUT 13 APR 2007
     Route: 048
     Dates: start: 20061201, end: 20070413
  8. ALBUTEROL SULFATE AUTOHALER [Concomitant]
  9. YASMIN [Suspect]
     Indication: HORMONE THERAPY
  10. ZOVIRAX [Concomitant]
     Dosage: 400 MG, SIG 1 BID
  11. ANTIBIOTICS [Concomitant]
     Dosage: UNK UNK, PRN
  12. CORGARD [Concomitant]
  13. ATIVAN [Concomitant]
  14. NADOLOL [Concomitant]
     Dosage: 40 MG, UNK
     Route: 048
  15. ADVAIR DISKUS 100/50 [Concomitant]
     Dosage: 1 PUFF(S), UNK
     Route: 048
  16. CELEXA [Concomitant]
  17. IBUPROFEN [Concomitant]

REACTIONS (3)
  - INJURY [None]
  - PULMONARY EMBOLISM [None]
  - DEEP VEIN THROMBOSIS [None]
